FAERS Safety Report 10469142 (Version 1)
Quarter: 2014Q3

REPORT INFORMATION
  Report Type: Spontaneous
  Country: US (occurrence: None)
  Receive Date: 20140922
  Receipt Date: 20140922
  Transmission Date: 20150326
  Serious: Yes (Death, Hospitalization)
  Sender: FDA-Public Use
  Company Number: None

PATIENT
  Age: 81 Year
  Sex: Female
  Weight: 56.7 kg

DRUGS (12)
  1. OMEPRAZOLE. [Concomitant]
     Active Substance: OMEPRAZOLE
  2. CRESTOR [Concomitant]
     Active Substance: ROSUVASTATIN CALCIUM
  3. PREDENISONE [Concomitant]
  4. LIDOCAINE PATCH [Concomitant]
     Active Substance: LIDOCAINE
  5. SPIRIVA [Concomitant]
     Active Substance: TIOTROPIUM BROMIDE MONOHYDRATE
  6. CLOZAPINE. [Concomitant]
     Active Substance: CLOZAPINE
  7. PROLIA [Suspect]
     Active Substance: DENOSUMAB
     Indication: OSTEOPOROSIS POSTMENOPAUSAL
     Dosage: 60MG?ONE SYRINGE?EVERY 6 MONTHS?INJECTION
     Route: 042
     Dates: start: 20130521, end: 20140714
  8. CALCIUM [Concomitant]
     Active Substance: CALCIUM
  9. VITAMIN D [Concomitant]
     Active Substance: CHOLECALCIFEROL
  10. CENTRUM SILVER [Concomitant]
     Active Substance: VITAMINS
  11. HYDROCODONE [Concomitant]
     Active Substance: HYDROCODONE
  12. TRAMADOL [Concomitant]
     Active Substance: TRAMADOL

REACTIONS (3)
  - Pain [None]
  - Hypoxia [None]
  - Back pain [None]

NARRATIVE: CASE EVENT DATE: 20140717
